FAERS Safety Report 5743430-8 (Version None)
Quarter: 2008Q2

REPORT INFORMATION
  Report Type: 
  Country: None (occurrence: None)
  Receive Date: 20080519
  Receipt Date: 20080519
  Transmission Date: 20081010
  Serious: Yes (Other)
  Sender: FDA-Public Use
  Company Number: None

PATIENT
  Age: 49 Year
  Sex: Female
  Weight: 89.3586 kg

DRUGS (2)
  1. KETOCONAZOLE 200 MG TEVA USA [Suspect]
     Indication: FUNGAL SKIN INFECTION
     Dosage: 1 TABLET 1X DAY PO
     Route: 048
     Dates: start: 20080513, end: 20080514
  2. KETOCONAZOLE 200 MG TEVA USA [Suspect]
     Indication: TINEA INFECTION
     Dosage: 1 TABLET 1X DAY PO
     Route: 048
     Dates: start: 20080513, end: 20080514

REACTIONS (2)
  - PRURITUS [None]
  - URTICARIA [None]
